FAERS Safety Report 12551967 (Version 2)
Quarter: 2016Q3

REPORT INFORMATION
  Report Type: Spontaneous
  Country: NL (occurrence: NL)
  Receive Date: 20160713
  Receipt Date: 20160819
  Transmission Date: 20161109
  Serious: Yes (Death, Hospitalization)
  Sender: FDA-Public Use
  Company Number: NL-OTSUKA-2016_017109

PATIENT
  Age: 75 Year
  Sex: Male
  Weight: 66 kg

DRUGS (4)
  1. DACOGEN [Suspect]
     Active Substance: DECITABINE
     Indication: ACUTE MYELOID LEUKAEMIA
     Dosage: 35 MG, 1 IN 1 DAY DAY 1 TO 10, CYCLIC
     Route: 042
     Dates: start: 20160130
  2. CIPROFLOXACIN. [Concomitant]
     Active Substance: CIPROFLOXACIN
     Indication: INFECTION PROPHYLAXIS
     Dosage: 500 MG, 2 IN 1 DAY
     Route: 048
     Dates: start: 20160221, end: 20160323
  3. VALACYCLOVIR [Concomitant]
     Active Substance: VALACYCLOVIR HYDROCHLORIDE
     Indication: INFECTION PROPHYLAXIS
     Dosage: 500 MG, 2 IN 1 DAY
     Route: 048
     Dates: start: 20160221, end: 20160323
  4. VORICONAZOLE. [Concomitant]
     Active Substance: VORICONAZOLE
     Indication: INFECTION PROPHYLAXIS
     Dosage: 150 MG, 2 IN 1 DAY
     Route: 048
     Dates: start: 20160301, end: 20160323

REACTIONS (1)
  - Systemic mycosis [Fatal]

NARRATIVE: CASE EVENT DATE: 20160323
